FAERS Safety Report 10870896 (Version 2)
Quarter: 2015Q3

REPORT INFORMATION
  Report Type: Report from Study
  Country: JP (occurrence: JP)
  Receive Date: 20150226
  Receipt Date: 20150814
  Transmission Date: 20151125
  Serious: Yes (Hospitalization, Other)
  Sender: FDA-Public Use
  Company Number: JP-SA-THYM-1001390

PATIENT
  Age: 63 Year
  Sex: Male
  Weight: 73 kg

DRUGS (8)
  1. CICLOSPORIN [Concomitant]
     Active Substance: CYCLOSPORINE
     Indication: MYELODYSPLASTIC SYNDROME
     Dosage: UNK
     Dates: start: 20090807
  2. NIZATIDINE. [Concomitant]
     Active Substance: NIZATIDINE
     Indication: MYELODYSPLASTIC SYNDROME
     Dosage: UNK
     Dates: start: 20091229
  3. FILGRASTIM [Concomitant]
     Active Substance: FILGRASTIM
     Dosage: 300 UNK, QD
     Route: 042
  4. NIZATIDINE. [Concomitant]
     Active Substance: NIZATIDINE
     Indication: PROPHYLAXIS AGAINST GASTROINTESTINAL ULCER
     Dosage: UNK
     Dates: start: 20091229
  5. METHYLPREDNISOLONE SODIUM SUCCINATE. [Concomitant]
     Active Substance: METHYLPREDNISOLONE SODIUM SUCCINATE
     Dosage: 125 UNK, QD
     Route: 042
  6. DEFERASIROX [Concomitant]
     Active Substance: DEFERASIROX
     Indication: PROPHYLAXIS
     Dosage: UNK
     Dates: start: 20100423
  7. THYMOGLOBULINE [Suspect]
     Active Substance: LAPINE T-LYMPHOCYTE IMMUNE GLOBULIN
     Indication: MYELODYSPLASTIC SYNDROME
     Dosage: 250 MG, QD
     Route: 042
     Dates: start: 20091215, end: 20091215
  8. DEFERASIROX [Concomitant]
     Active Substance: DEFERASIROX
     Indication: MYELODYSPLASTIC SYNDROME
     Dosage: UNK
     Dates: start: 20100423

REACTIONS (4)
  - Renal cancer [Unknown]
  - Non-Hodgkin^s lymphoma [Recovering/Resolving]
  - Hyperthermia [Recovered/Resolved]
  - Tremor [Recovered/Resolved]

NARRATIVE: CASE EVENT DATE: 20091215
